FAERS Safety Report 6670923-1 (Version None)
Quarter: 2010Q2

REPORT INFORMATION
  Report Type: 
  Country: None (occurrence: None)
  Receive Date: 20100406
  Receipt Date: 20100406
  Transmission Date: 20101027
  Serious: Yes (Life-Threatening, Hospitalization)
  Sender: FDA-Public Use
  Company Number: None

PATIENT
  Sex: Male
  Weight: 99.7913 kg

DRUGS (1)
  1. SOMA [Suspect]
     Indication: BACK PAIN
     Dosage: 1 PILL AS NEEDED PO
     Route: 048
     Dates: start: 20100404, end: 20100404

REACTIONS (2)
  - DRUG HYPERSENSITIVITY [None]
  - SKIN DISCOLOURATION [None]
